FAERS Safety Report 9812119 (Version 2)
Quarter: 2014Q1

REPORT INFORMATION
  Report Type: Report from Study
  Country: GB (occurrence: GB)
  Receive Date: 20140111
  Receipt Date: 20140116
  Transmission Date: 20141002
  Serious: Yes (Disabling)
  Sender: FDA-Public Use
  Company Number: GB-US-EMD SERONO, INC.-7262233

PATIENT
  Sex: Female

DRUGS (1)
  1. REBIF [Suspect]
     Indication: PRODUCT USED FOR UNKNOWN INDICATION
     Route: 058
     Dates: start: 20120312, end: 20131218

REACTIONS (2)
  - Disability [Not Recovered/Not Resolved]
  - Alopecia [Not Recovered/Not Resolved]
